FAERS Safety Report 16132925 (Version 1)
Quarter: 2019Q1

REPORT INFORMATION
  Report Type: Spontaneous
  Country: ID (occurrence: ID)
  Receive Date: 20190329
  Receipt Date: 20190329
  Transmission Date: 20190418
  Serious: Yes (Other)
  Sender: FDA-Public Use
  Company Number: ID-SA-2019SA079810

PATIENT
  Age: 61 Year
  Sex: Male

DRUGS (7)
  1. ACETYLSALICYLIC ACID [Suspect]
     Active Substance: ASPIRIN
     Dosage: UNK
  2. CLOPIDOGREL BISULFATE. [Suspect]
     Active Substance: CLOPIDOGREL BISULFATE
     Dosage: UNK
  3. CAPTOPRIL. [Concomitant]
     Active Substance: CAPTOPRIL
  4. ATORVASTATIN [Concomitant]
     Active Substance: ATORVASTATIN
  5. BISOPROLOL [Concomitant]
     Active Substance: BISOPROLOL
  6. WARFARIN SODIUM. [Suspect]
     Active Substance: WARFARIN SODIUM
     Dosage: UNK
  7. ISOSORBIDE DINITRATE. [Concomitant]
     Active Substance: ISOSORBIDE DINITRATE

REACTIONS (7)
  - Anticoagulation drug level below therapeutic [Recovered/Resolved]
  - Acute coronary syndrome [Recovered/Resolved]
  - Electrocardiogram T wave inversion [Recovered/Resolved]
  - Treatment noncompliance [Unknown]
  - Electrocardiogram ST segment depression [Recovered/Resolved]
  - Left ventricular hypertrophy [Recovered/Resolved]
  - Sinus rhythm [Recovered/Resolved]
